FAERS Safety Report 26157673 (Version 1)
Quarter: 2025Q4

REPORT INFORMATION
  Report Type: Spontaneous
  Country: US (occurrence: None)
  Receive Date: 20251212
  Receipt Date: 20251212
  Transmission Date: 20260118
  Serious: Yes (Hospitalization)
  Sender: FDA-CTU
  Company Number: None

PATIENT
  Age: 73 Year
  Weight: 97.5 kg

DRUGS (10)
  1. STEQEYMA [Suspect]
     Active Substance: USTEKINUMAB-STBA
     Indication: Psoriatic arthropathy
     Dosage: OTHER FREQUENCY : EVERY 3 MONTHS;
     Route: 058
     Dates: start: 20250709, end: 20251113
  2. CETIRIZINE [Concomitant]
     Active Substance: CETIRIZINE HYDROCHLORIDE
  3. ELIQUIS [Concomitant]
     Active Substance: APIXABAN
  4. HYDROCHLOROTHIAZIDE [Concomitant]
     Active Substance: HYDROCHLOROTHIAZIDE
  5. OLMESARTAN [Concomitant]
     Active Substance: OLMESARTAN
  6. OMEPRAZOLE [Concomitant]
     Active Substance: OMEPRAZOLE
  7. SILDENAFIL [Concomitant]
     Active Substance: SILDENAFIL
  8. TADALAFIL [Concomitant]
     Active Substance: TADALAFIL
  9. TRAZODONE [Concomitant]
     Active Substance: TRAZODONE HYDROCHLORIDE
  10. ZOLPIDEM [Concomitant]
     Active Substance: ZOLPIDEM TARTRATE

REACTIONS (3)
  - Pancreatic carcinoma [None]
  - Therapy interrupted [None]
  - Incision site haematoma [None]

NARRATIVE: CASE EVENT DATE: 20251113
